FAERS Safety Report 4470720-1 (Version None)
Quarter: 2004Q4

REPORT INFORMATION
  Report Type: 
  Country: None (occurrence: None)
  Receive Date: 20041006
  Receipt Date: 20041006
  Transmission Date: 20050328
  Serious: Yes (Hospitalization)
  Sender: FDA-Public Use
  Company Number: None

PATIENT
  Age: 68 Year
  Sex: Female
  Weight: 78.4723 kg

DRUGS (3)
  1. METOPROLOL [Suspect]
     Indication: ATHEROSCLEROSIS
     Dates: start: 19850101
  2. METOPROLOL [Suspect]
     Indication: HYPERTENSION
     Dates: start: 19850101
  3. METOPROLOL [Suspect]
     Indication: PALPITATIONS
     Dates: start: 19850101

REACTIONS (1)
  - PHARMACEUTICAL PRODUCT COMPLAINT [None]
